FAERS Safety Report 7471195-0 (Version None)
Quarter: 2011Q2

REPORT INFORMATION
  Report Type: 
  Country: None (occurrence: None)
  Receive Date: 20110510
  Receipt Date: 20110428
  Transmission Date: 20111010
  Serious: Yes (Death, Hospitalization)
  Sender: FDA-Public Use
  Company Number: US-ACTELION-A-NJ2011-48210

PATIENT

DRUGS (1)
  1. TRACLEER [Suspect]
     Indication: PULMONARY ARTERIAL HYPERTENSION
     Dosage: 62.5 MG, QD
     Route: 048
     Dates: start: 20100618, end: 20110408

REACTIONS (4)
  - ACUTE RESPIRATORY FAILURE [None]
  - ASTHENIA [None]
  - PULMONARY HYPERTENSION [None]
  - CARDIAC FAILURE CONGESTIVE [None]
